FAERS Safety Report 11241070 (Version 1)
Quarter: 2015Q3

REPORT INFORMATION
  Report Type: Spontaneous
  Country: US (occurrence: US)
  Receive Date: 20150706
  Receipt Date: 20150706
  Transmission Date: 20151125
  Serious: Yes (Other)
  Sender: FDA-Public Use
  Company Number: US-GSKJP-US2015039105AA

PATIENT
  Age: 67 Year
  Sex: Male

DRUGS (7)
  1. LACTULOSE. [Concomitant]
     Active Substance: LACTULOSE
  2. ONDANSETRON [Concomitant]
     Active Substance: ONDANSETRON
  3. CARAFATE [Concomitant]
     Active Substance: SUCRALFATE
  4. AVODART [Suspect]
     Active Substance: DUTASTERIDE
     Indication: PROSTATOMEGALY
     Dosage: 0.5 MG, QD
     Route: 048
  5. OMEPRAZOLE. [Concomitant]
     Active Substance: OMEPRAZOLE
  6. ATORVASTATIN [Concomitant]
     Active Substance: ATORVASTATIN
  7. LIDOCAINE SPRAY [Concomitant]

REACTIONS (1)
  - Lung neoplasm malignant [Not Recovered/Not Resolved]

NARRATIVE: CASE EVENT DATE: 20150102
